FAERS Safety Report 10155349 (Version 1)
Quarter: 2014Q2

REPORT INFORMATION
  Report Type: Report from Study
  Country: IE (occurrence: IE)
  Receive Date: 20140506
  Receipt Date: 20140506
  Transmission Date: 20141212
  Serious: Yes (Hospitalization)
  Sender: FDA-Public Use
  Company Number: IE-SHIRE-IE201401704

PATIENT
  Sex: Female
  Weight: 63 kg

DRUGS (2)
  1. IDURSULFASE [Suspect]
     Indication: MUCOPOLYSACCHARIDOSIS II
     Dosage: 30 MG, 1X/WEEK
     Route: 041
     Dates: start: 20071005
  2. EMLA                               /00675501/ [Concomitant]
     Indication: PREMEDICATION
     Dosage: UNK, UNKNOWN
     Route: 061

REACTIONS (1)
  - Eye disorder [Unknown]
